FAERS Safety Report 7290310-5 (Version None)
Quarter: 2011Q1

REPORT INFORMATION
  Report Type: 
  Country: None (occurrence: None)
  Receive Date: 20110209
  Receipt Date: 20110209
  Transmission Date: 20110831
  Serious: Yes (Life-Threatening, Disabling, Other)
  Sender: FDA-Public Use
  Company Number: None

PATIENT
  Sex: Male
  Weight: 79.3795 kg

DRUGS (2)
  1. TYL # 3 [Suspect]
     Indication: SKULL FRACTURE
     Dosage: 2-3
  2. OXYCET [Suspect]
     Indication: INTERVERTEBRAL DISC DEGENERATION
     Dosage: 1-2

REACTIONS (3)
  - LUNG DISORDER [None]
  - GINGIVAL DISORDER [None]
  - PRODUCT FORMULATION ISSUE [None]
